FAERS Safety Report 20538236 (Version 1)
Quarter: 2022Q1

REPORT INFORMATION
  Report Type: Spontaneous
  Country: CN (occurrence: CN)
  Receive Date: 20220302
  Receipt Date: 20220302
  Transmission Date: 20220424
  Serious: Yes (Hospitalization)
  Sender: FDA-Public Use
  Company Number: CN-BAYER-2021-203750

PATIENT
  Age: 86 Year
  Sex: Male
  Weight: 75 kg

DRUGS (1)
  1. XARELTO [Suspect]
     Active Substance: RIVAROXABAN
     Indication: Cerebral infarction
     Dosage: 15 MG, QD
     Route: 048
     Dates: start: 20210506, end: 20210822

REACTIONS (6)
  - Post-traumatic pain [Unknown]
  - Joint swelling [Unknown]
  - Peptic ulcer haemorrhage [Recovering/Resolving]
  - Off label use [Unknown]
  - Inappropriate schedule of product administration [Unknown]
  - Product prescribing issue [Unknown]

NARRATIVE: CASE EVENT DATE: 20210506
